FAERS Safety Report 9812711 (Version 2)
Quarter: 2014Q1

REPORT INFORMATION
  Report Type: Spontaneous
  Country: US (occurrence: US)
  Receive Date: 20140113
  Receipt Date: 20140113
  Transmission Date: 20141002
  Serious: Yes (Hospitalization, Other)
  Sender: FDA-Public Use
  Company Number: 2013SP007548

PATIENT
  Age: 91 Year
  Sex: Female

DRUGS (5)
  1. VANCOMYCIN [Suspect]
     Indication: CHOLECYSTITIS ACUTE
  2. PIPERACILLIN/TAZOBACTAM [Suspect]
     Indication: CHOLECYSTITIS ACUTE
  3. AMPICILLIN SODIUM W/SULBACTAM SODIUM [Suspect]
     Indication: CHOLECYSTITIS ACUTE
  4. AMOXICILLIN W/CLAVULANATE POTASSIUM [Suspect]
     Indication: CHOLECYSTITIS ACUTE
  5. CEFTAZIDIME [Suspect]
     Indication: CHOLECYSTITIS ACUTE

REACTIONS (3)
  - Linear IgA disease [Not Recovered/Not Resolved]
  - Blister [Not Recovered/Not Resolved]
  - Skin exfoliation [Not Recovered/Not Resolved]
